FAERS Safety Report 15368882 (Version 1)
Quarter: 2018Q4

REPORT INFORMATION
  Report Type: Spontaneous
  Country: FR (occurrence: FR)
  Receive Date: 20180911
  Receipt Date: 20180911
  Transmission Date: 20190204
  Serious: Yes (Life-Threatening, Hospitalization)
  Sender: FDA-Public Use
  Company Number: FR-TEVA-2018-FR-953129

PATIENT
  Age: 82 Year
  Sex: Female

DRUGS (8)
  1. APROVEL 75 MG, COMPRIM? PELLICUL? [Suspect]
     Active Substance: IRBESARTAN
     Indication: HYPERTENSION
     Dosage: 150 MILLIGRAM DAILY;
     Route: 048
     Dates: start: 201801, end: 20180403
  2. INEXIUM 40 MG, COMPRIM? GASTRO-R?SISTANT [Concomitant]
     Active Substance: ESOMEPRAZOLE
  3. PYOSTACINE [Concomitant]
     Active Substance: PRISTINAMYCIN
  4. LASILIX 40 MG, COMPRIM? S?CABLE [Concomitant]
     Active Substance: FUROSEMIDE
  5. DIFFU K [Concomitant]
     Active Substance: POTASSIUM CHLORIDE
  6. AMOXICILLINE [Suspect]
     Active Substance: AMOXICILLIN
     Indication: ERYSIPELAS
     Dosage: 2000 MILLIGRAM DAILY;
     Route: 048
     Dates: start: 20180327, end: 20180329
  7. FUMAFER [Concomitant]
     Active Substance: FERROUS FUMARATE
  8. BISOPROLOL (FUMARATE DE) [Concomitant]
     Active Substance: BISOPROLOL FUMARATE

REACTIONS (1)
  - Drug reaction with eosinophilia and systemic symptoms [Recovered/Resolved]

NARRATIVE: CASE EVENT DATE: 20180329
